FAERS Safety Report 11198815 (Version 1)
Quarter: 2015Q2

REPORT INFORMATION
  Report Type: Spontaneous
  Country: AU (occurrence: None)
  Receive Date: 20150616
  Receipt Date: 20150616
  Transmission Date: 20150821
  Serious: Yes (Death, Other)
  Sender: FDA-Public Use
  Company Number: 2015HINLIT0499

PATIENT
  Age: 3 Month

DRUGS (1)
  1. LAMIVUDINE (LAMIVUDINE) UNKNOWN [Suspect]
     Active Substance: LAMIVUDINE
     Indication: HEPATITIS B
     Route: 064

REACTIONS (3)
  - Maternal drugs affecting foetus [None]
  - Sudden infant death syndrome [None]
  - Foetal exposure during pregnancy [None]
